FAERS Safety Report 8947902 (Version 2)
Quarter: 2013Q1

REPORT INFORMATION
  Report Type: Spontaneous
  Country: US (occurrence: None)
  Receive Date: 20121127
  Receipt Date: 20121203
  Transmission Date: 20140127
  Serious: Yes (Other)
  Sender: FDA-Public Use
  Company Number: 2012-7818

PATIENT
  Age: 41 Year
  Sex: Female

DRUGS (3)
  1. DYSPORT [Suspect]
     Indication: SKIN COSMETIC PROCEDURE
     Dosage: (1 IN 1 CYCLE(S))
     Dates: start: 20120920, end: 20120920
  2. RESTYLANE -L [Suspect]
     Indication: SKIN COSMETIC PROCEDURE
     Dates: start: 20120920, end: 20120920
  3. INFERTILITY TREATMENT [Concomitant]

REACTIONS (2)
  - Cellulitis [None]
  - Exposure during pregnancy [None]
